FAERS Safety Report 16988885 (Version 1)
Quarter: 2019Q4

REPORT INFORMATION
  Report Type: Spontaneous
  Country: US (occurrence: US)
  Receive Date: 20191101
  Receipt Date: 20191101
  Transmission Date: 20200122
  Serious: Yes (Other)
  Sender: FDA-Public Use
  Company Number: None

PATIENT
  Age: 57 Year
  Sex: Female

DRUGS (1)
  1. MULTIHANCE [Suspect]
     Active Substance: GADOBENATE DIMEGLUMINE
     Indication: MAGNETIC RESONANCE IMAGING
     Dates: start: 20161012, end: 20161012

REACTIONS (8)
  - Arthralgia [None]
  - Skin haemorrhage [None]
  - Pain [None]
  - Intervertebral disc degeneration [None]
  - Chondropathy [None]
  - Skin texture abnormal [None]
  - Contrast media toxicity [None]
  - Blood pressure inadequately controlled [None]

NARRATIVE: CASE EVENT DATE: 20161011
